FAERS Safety Report 22608130 (Version 2)
Quarter: 2024Q3

REPORT INFORMATION
  Report Type: Report from Study
  Country: US (occurrence: US)
  Receive Date: 20230616
  Receipt Date: 20240822
  Transmission Date: 20241016
  Serious: Yes (Other)
  Sender: UCB
  Company Number: US-UCBSA-2023025030

PATIENT
  Age: 9 Year
  Sex: Female

DRUGS (3)
  1. FINTEPLA [Suspect]
     Active Substance: FENFLURAMINE
     Indication: Severe myoclonic epilepsy of infancy
     Dosage: 8 MILLILITER, ONCE DAILY (QD)
     Dates: start: 20201119
  2. FINTEPLA [Suspect]
     Active Substance: FENFLURAMINE
     Dosage: 3 ML IN THE MORNING AND 5 ML IN THE EVENING
  3. FINTEPLA [Suspect]
     Active Substance: FENFLURAMINE
     Dosage: 3 ML IN THE MORNING AND 5 ML IN THE EVENING

REACTIONS (3)
  - Seizure [Not Recovered/Not Resolved]
  - Constipation [Not Recovered/Not Resolved]
  - Product use issue [Unknown]

NARRATIVE: CASE EVENT DATE: 20230515
